FAERS Safety Report 25121116 (Version 5)
Quarter: 2025Q3

REPORT INFORMATION
  Report Type: Spontaneous
  Country: US (occurrence: US)
  Receive Date: 20250326
  Receipt Date: 20250718
  Transmission Date: 20251021
  Serious: Yes (Other)
  Sender: BRISTOL-MYERS SQUIBB COMPANY
  Company Number: US-BRISTOL-MYERS SQUIBB COMPANY-2025-043459

PATIENT
  Age: 74 Year
  Sex: Female

DRUGS (1)
  1. REVLIMID [Suspect]
     Active Substance: LENALIDOMIDE
     Indication: Plasma cell myeloma
     Dosage: QD FOR 21 DAYS
     Route: 048

REACTIONS (10)
  - Fatigue [Unknown]
  - Arthralgia [Unknown]
  - Auditory disorder [Unknown]
  - Visual impairment [Unknown]
  - Neuropathy peripheral [Unknown]
  - Asthenia [Unknown]
  - Dizziness [Unknown]
  - Hypoaesthesia [Unknown]
  - Balance disorder [Unknown]
  - Dysuria [Unknown]
